FAERS Safety Report 7436812-X (Version None)
Quarter: 2011Q2

REPORT INFORMATION
  Report Type: 
  Country: None (occurrence: None)
  Receive Date: 20110426
  Receipt Date: 20110120
  Transmission Date: 20111010
  Serious: Yes (Hospitalization, Other)
  Sender: FDA-Public Use
  Company Number: US-BAYER-2010-003364

PATIENT
  Age: 40 Year
  Sex: Female
  Weight: 55.329 kg

DRUGS (19)
  1. CIPROFLOXACIN [Concomitant]
     Dosage: UNK
     Dates: start: 20081214, end: 20081220
  2. LEXAPRO [Concomitant]
     Indication: DEPRESSION
     Dosage: 20 MG, QD
     Dates: start: 20050101
  3. SKELAXIN [Concomitant]
     Dosage: 800 MG, PRN
  4. LISINOPRIL HYDROCHLORTHIAZID [Concomitant]
     Dosage: UNK
     Dates: start: 20090501, end: 20090601
  5. HYDROCHLOROTHIAZIDE [Concomitant]
     Dosage: UNK
     Dates: start: 20090101, end: 20090201
  6. ULTRAM [Concomitant]
     Dosage: 50 MG, UNK
  7. SUDAFED 12 HOUR [Concomitant]
  8. ONDASETRON [Concomitant]
     Dosage: 4 MG, UNK
  9. YAZ [Suspect]
     Indication: OVARIAN CYST
     Dosage: UNK
     Route: 048
     Dates: start: 20081222, end: 20090106
  10. LYRICA [Concomitant]
  11. PHENERGAN HCL [Concomitant]
  12. ZESTRIL [Concomitant]
     Dosage: 5 MG, QD
     Dates: start: 20090501, end: 20090601
  13. CLONAZEPAM [Concomitant]
     Dosage: UNK
     Dates: start: 20101001
  14. MOTRIN [Concomitant]
     Dosage: UNK
     Dates: start: 20081101
  15. NEURONTIN [Concomitant]
     Indication: NEURALGIA
     Dosage: 300 MG, QD
     Dates: start: 20081201
  16. NAPROSYN [Concomitant]
     Dosage: UNK
     Dates: start: 20081001
  17. TRIMETHOPRIM [Concomitant]
  18. LORAZEPAM [Concomitant]
     Dosage: 0.5 MG, PRN
  19. LOPRESSOR [Concomitant]
     Dosage: UNK
     Dates: start: 20090101

REACTIONS (8)
  - CONTUSION [None]
  - ANAEMIA [None]
  - INTRA-ABDOMINAL HAEMORRHAGE [None]
  - NAUSEA [None]
  - PAIN [None]
  - INJURY [None]
  - PULMONARY EMBOLISM [None]
  - HYPERTENSION [None]
